FAERS Safety Report 24897629 (Version 3)
Quarter: 2025Q1

REPORT INFORMATION
  Report Type: Spontaneous
  Country: US (occurrence: US)
  Receive Date: 20250129
  Receipt Date: 20250311
  Transmission Date: 20250408
  Serious: Yes (Death, Other)
  Sender: UCB
  Company Number: US-UCBSA-2025004806

PATIENT
  Sex: Male

DRUGS (2)
  1. CIMZIA [Suspect]
     Active Substance: CERTOLIZUMAB PEGOL
     Indication: Rheumatoid arthritis
     Dosage: 400 MILLIGRAM, EV 4 WEEKS
     Route: 058
     Dates: start: 201910
  2. CIMZIA [Suspect]
     Active Substance: CERTOLIZUMAB PEGOL
     Indication: Psoriatic arthropathy

REACTIONS (3)
  - Death [Fatal]
  - Condition aggravated [Unknown]
  - Respiratory syncytial virus infection [Unknown]
